FAERS Safety Report 9812193 (Version 2)
Quarter: 2014Q2

REPORT INFORMATION
  Report Type: Report from Study
  Country: KR (occurrence: KR)
  Receive Date: 20140112
  Receipt Date: 20140415
  Transmission Date: 20141212
  Serious: Yes (Hospitalization)
  Sender: FDA-Public Use
  Company Number: KR-BRISTOL-MYERS SQUIBB COMPANY-20000626

PATIENT
  Age: 53 Year
  Sex: Male

DRUGS (5)
  1. ERBITUX SOLN FOR INF [Suspect]
     Indication: TONSIL CANCER
     Dosage: DOSE:400MG:?DOSE:700MG.?RECENT DOSE:25JUN2013
     Route: 042
     Dates: start: 20130521
  2. CISPLATIN [Suspect]
     Indication: TONSIL CANCER
     Dosage: 17FEB2012:UNK
     Route: 042
     Dates: start: 20130521
  3. 5-FLUOROURACIL [Suspect]
     Indication: TONSIL CANCER
     Route: 042
     Dates: start: 20130521
  4. CENTRUM [Concomitant]
     Indication: VITAMIN SUPPLEMENTATION
     Dosage: TABS
     Route: 048
     Dates: start: 20130702
  5. ULCERMIN [Concomitant]
     Indication: PROPHYLAXIS AGAINST GASTROINTESTINAL ULCER
     Dosage: SUSPENSION
     Dates: start: 20130701

REACTIONS (2)
  - Odynophagia [Recovered/Resolved]
  - Decreased appetite [Recovered/Resolved]
